FAERS Safety Report 7014124-6 (Version None)
Quarter: 2010Q3

REPORT INFORMATION
  Report Type: 
  Country: None (occurrence: None)
  Receive Date: 20100927
  Receipt Date: 20100922
  Transmission Date: 20110219
  Serious: Yes (Death, Hospitalization)
  Sender: FDA-Public Use
  Company Number: DE-WYE-G01977308

PATIENT
  Sex: Male
  Weight: 107 kg

DRUGS (5)
  1. TORISEL [Suspect]
     Indication: METASTATIC RENAL CELL CARCINOMA
     Route: 042
     Dates: start: 20080605, end: 20080724
  2. CLEMASTINE FUMARATE [Concomitant]
     Indication: PREMEDICATION
     Route: 042
     Dates: start: 20080605, end: 20080724
  3. VOLTAREN [Concomitant]
     Dosage: 12.5 MG AS NEEDED
     Route: 048
     Dates: start: 20070801
  4. METOHEXAL [Concomitant]
     Route: 048
     Dates: start: 20040101
  5. HCT [Concomitant]
     Route: 048
     Dates: start: 20040101

REACTIONS (3)
  - ANAEMIA [None]
  - PNEUMONIA [None]
  - RESPIRATORY FAILURE [None]
